FAERS Safety Report 7965356-1 (Version None)
Quarter: 2011Q4

REPORT INFORMATION
  Report Type: 
  Country: None (occurrence: None)
  Receive Date: 20111208
  Receipt Date: 20111201
  Transmission Date: 20120403
  Serious: Yes (Other)
  Sender: FDA-Public Use
  Company Number: PHHY2011BR105591

PATIENT
  Sex: Female

DRUGS (1)
  1. FORMOTEROL FUMARATE [Suspect]
     Indication: ASTHMA
     Dosage: 1 DF, UNK

REACTIONS (6)
  - HUNGER [None]
  - EATING DISORDER [None]
  - MUSCULAR WEAKNESS [None]
  - CARDIAC DISORDER [None]
  - MALAISE [None]
  - TREMOR [None]
